FAERS Safety Report 5356484-8 (Version None)
Quarter: 2007Q2

REPORT INFORMATION
  Report Type: 
  Country: None (occurrence: None)
  Receive Date: 20070530
  Receipt Date: 20061213
  Transmission Date: 20071010
  Serious: Yes (Hospitalization)
  Sender: FDA-Public Use
  Company Number: US200608005805

PATIENT
  Age: 52 Year
  Sex: Female
  Weight: 88.4 kg

DRUGS (3)
  1. ZYPREXA [Suspect]
     Dosage: 2.5 MG
  2. RISPERDAL [Concomitant]
  3. ADVAIR DISKUS 100/50 [Concomitant]

REACTIONS (7)
  - BLOOD CHOLESTEROL INCREASED [None]
  - BLOOD TRIGLYCERIDES INCREASED [None]
  - CHEST PAIN [None]
  - DIABETES MELLITUS [None]
  - HYPERTENSION [None]
  - METABOLIC DISORDER [None]
  - OBESITY [None]
